FAERS Safety Report 18930224 (Version 4)
Quarter: 2021Q3

REPORT INFORMATION
  Report Type: Report from Study
  Country: None (occurrence: AR)
  Receive Date: 20210224
  Receipt Date: 20210701
  Transmission Date: 20211014
  Serious: Yes (Hospitalization)
  Sender: FDA-Public Use
  Company Number: AR-ABBVIE-20K-007-3595981-00

PATIENT
  Age: 44 Year
  Sex: Female

DRUGS (1)
  1. HUMIRA [Suspect]
     Active Substance: ADALIMUMAB
     Indication: PSORIATIC ARTHROPATHY
     Route: 058
     Dates: start: 20180621, end: 201911

REACTIONS (17)
  - C-reactive protein increased [Unknown]
  - Pulmonary hypertension [Not Recovered/Not Resolved]
  - Hypoacusis [Not Recovered/Not Resolved]
  - Arthritis [Unknown]
  - COVID-19 [Recovered/Resolved with Sequelae]
  - Neck pain [Unknown]
  - Arthralgia [Unknown]
  - Inflammation [Unknown]
  - Onychalgia [Unknown]
  - Agitation [Not Recovered/Not Resolved]
  - Pneumonia [Unknown]
  - Psoriatic arthropathy [Not Recovered/Not Resolved]
  - Pain [Not Recovered/Not Resolved]
  - Hypertension [Not Recovered/Not Resolved]
  - Sleep apnoea syndrome [Not Recovered/Not Resolved]
  - Hiccups [Not Recovered/Not Resolved]
  - Secretion discharge [Unknown]

NARRATIVE: CASE EVENT DATE: 20200828
